FAERS Safety Report 19237667 (Version 2)
Quarter: 2023Q2

REPORT INFORMATION
  Report Type: Report from Study
  Country: CA (occurrence: CA)
  Receive Date: 20210510
  Receipt Date: 20230405
  Transmission Date: 20230722
  Serious: Yes (Other)
  Sender: FDA-Public Use
  Company Number: CA-JNJFOC-20210509774

PATIENT
  Age: 17 Year
  Sex: Male
  Weight: 55.34 kg

DRUGS (4)
  1. REMICADE [Suspect]
     Active Substance: INFLIXIMAB
     Indication: Crohn^s disease
     Route: 042
     Dates: start: 20210402
  2. REMICADE [Suspect]
     Active Substance: INFLIXIMAB
     Dosage: 600MG AT INDUCTION WEEK 6 (AMP) 600MG, Q8 WEEKS MAINTENANCE
     Route: 042
     Dates: start: 2021
  3. REMICADE [Suspect]
     Active Substance: INFLIXIMAB
     Route: 042
  4. PREDNISONE [Concomitant]
     Active Substance: PREDNISONE
     Indication: Product used for unknown indication
     Route: 048

REACTIONS (2)
  - Crohn^s disease [Not Recovered/Not Resolved]
  - Off label use [Unknown]

NARRATIVE: CASE EVENT DATE: 20210101
